FAERS Safety Report 5468404-6 (Version None)
Quarter: 2007Q3

REPORT INFORMATION
  Report Type: 
  Country: None (occurrence: None)
  Receive Date: 20070926
  Receipt Date: 20070919
  Transmission Date: 20080115
  Serious: Yes (Hospitalization, Other)
  Sender: FDA-Public Use
  Company Number: US-ROCHE-420457

PATIENT
  Sex: Female

DRUGS (2)
  1. PEGASYS [Suspect]
     Dosage: ROUTE REPORTED AS INJECTABLE.
     Route: 050
     Dates: start: 20040101, end: 20040301
  2. COPEGUS [Suspect]
     Dosage: 3 TABS AM AND 3 TABS PM.
     Route: 048
     Dates: start: 20040101, end: 20040301

REACTIONS (20)
  - ANOREXIA [None]
  - APLASIA PURE RED CELL [None]
  - ASTHENIA [None]
  - BASEDOW'S DISEASE [None]
  - BONE PAIN [None]
  - CHROMATURIA [None]
  - CONVULSION [None]
  - DEPRESSION [None]
  - DISORIENTATION [None]
  - DIZZINESS [None]
  - DYSPHAGIA [None]
  - FATIGUE [None]
  - GINGIVAL PAIN [None]
  - HAEMORRHAGIC DIATHESIS [None]
  - HEPATOMEGALY [None]
  - HYPERTHYROIDISM [None]
  - INFLUENZA LIKE ILLNESS [None]
  - LIVER TENDERNESS [None]
  - RED BLOOD CELL COUNT DECREASED [None]
  - VIRAL LOAD INCREASED [None]
